FAERS Safety Report 14413197 (Version 1)
Quarter: 2018Q1

REPORT INFORMATION
  Report Type: Spontaneous
  Country: US (occurrence: US)
  Receive Date: 20180119
  Receipt Date: 20180119
  Transmission Date: 20180509
  Serious: Yes (Hospitalization)
  Sender: FDA-Public Use
  Company Number: US-IMPAX LABORATORIES, INC-2018-IPXL-00099

PATIENT
  Age: 29 Year
  Sex: Male

DRUGS (1)
  1. DIVALPROEX SODIUM ER [Suspect]
     Active Substance: DIVALPROEX SODIUM
     Indication: AFFECTIVE DISORDER
     Dosage: UNK
     Route: 065

REACTIONS (7)
  - Hyperkalaemia [Unknown]
  - Anion gap [Unknown]
  - Hyperammonaemia [Unknown]
  - Hypocalcaemia [Unknown]
  - Hypernatraemia [Unknown]
  - Toxicity to various agents [Unknown]
  - Lactic acidosis [Unknown]
